FAERS Safety Report 10284892 (Version 1)
Quarter: 2014Q3

REPORT INFORMATION
  Report Type: Spontaneous
  Country: TR (occurrence: TR)
  Receive Date: 20140708
  Receipt Date: 20140708
  Transmission Date: 20150326
  Serious: Yes (Life-Threatening, Hospitalization)
  Sender: FDA-Public Use
  Company Number: PHHY2014TR083058

PATIENT
  Age: 3 Year
  Sex: Male

DRUGS (1)
  1. TEGRETOL [Suspect]
     Active Substance: CARBAMAZEPINE
     Indication: STATUS EPILEPTICUS
     Dosage: 20 DF, UNK

REACTIONS (9)
  - Drug level increased [Recovered/Resolved]
  - Loss of consciousness [Recovering/Resolving]
  - Face oedema [Recovering/Resolving]
  - Slow response to stimuli [Recovering/Resolving]
  - Toxicity to various agents [Recovering/Resolving]
  - Eyelid oedema [Recovering/Resolving]
  - Mydriasis [Recovering/Resolving]
  - Hypotension [Recovering/Resolving]
  - Tachycardia [Recovering/Resolving]
